FAERS Safety Report 6280036-9 (Version None)
Quarter: 2009Q3

REPORT INFORMATION
  Report Type: 
  Country: None (occurrence: None)
  Receive Date: 20090723
  Receipt Date: 20090714
  Transmission Date: 20100115
  Serious: Yes (Life-Threatening, Hospitalization)
  Sender: FDA-Public Use
  Company Number: MX-PFIZER INC-2009241279

PATIENT
  Age: 78 Year

DRUGS (6)
  1. LYRICA [Suspect]
     Dosage: 150 MG, UNK
     Route: 048
     Dates: start: 20090703, end: 20090703
  2. LIPITOR [Concomitant]
     Dosage: UNK
     Route: 048
     Dates: start: 20081001
  3. ACETYLSALICYLIC ACID [Concomitant]
     Dosage: UNK
     Route: 048
     Dates: start: 20050101
  4. MICARDIS [Concomitant]
     Dosage: UNK
     Route: 048
     Dates: start: 20081001
  5. SELOKEN [Concomitant]
     Dosage: UNK
     Route: 048
     Dates: start: 20050101
  6. AMLODIPINE BESYLATE AND BENAZEPRIL HCL [Concomitant]
     Dosage: UNK
     Route: 048
     Dates: start: 20050101

REACTIONS (1)
  - RESPIRATORY FAILURE [None]
